FAERS Safety Report 7324893-3 (Version None)
Quarter: 2011Q1

REPORT INFORMATION
  Report Type: 
  Country: None (occurrence: None)
  Receive Date: 20110301
  Receipt Date: 20110211
  Transmission Date: 20110831
  Serious: Yes (Other)
  Sender: FDA-Public Use
  Company Number: US-B.I. PHARMACEUTICALS,INC./RIDGEFIELD-2011-BP-00097BP

PATIENT
  Age: 88 Year
  Sex: Female

DRUGS (16)
  1. EFUDEX [Concomitant]
     Indication: CYSTITIS
     Dates: start: 20070101
  2. VESICARE [Concomitant]
     Indication: INCONTINENCE
     Dosage: 10 MG
     Dates: start: 20080101
  3. METOPROLOL [Concomitant]
     Indication: HYPERTENSION
     Dosage: 100 MG
  4. FLONASE [Concomitant]
     Indication: BRONCHITIS
  5. LIPITOR [Concomitant]
     Indication: BLOOD CHOLESTEROL INCREASED
     Dosage: 20 MG
  6. FLONASE [Concomitant]
     Indication: MULTIPLE ALLERGIES
  7. FEXOFENADINE [Concomitant]
     Indication: BRONCHITIS
  8. PROMETHAZINE [Concomitant]
     Indication: NAUSEA
  9. PANTOPRAZOLE [Concomitant]
     Indication: GASTROOESOPHAGEAL REFLUX DISEASE
     Route: 048
  10. FEXOFENADINE [Concomitant]
     Indication: MULTIPLE ALLERGIES
     Dosage: 180 MG
  11. PRADAXA [Suspect]
     Indication: ATRIAL FIBRILLATION
     Dosage: 300 MG
     Route: 048
     Dates: start: 20101201, end: 20110209
  12. CALCIUM [Concomitant]
     Indication: SUPPLEMENTATION THERAPY
  13. RECLAST [Concomitant]
     Indication: OSTEOPOROSIS
  14. HYDROCODONE [Concomitant]
     Indication: PAIN
  15. VITAMIN B-12 [Concomitant]
     Indication: ANAEMIA
  16. DEXILANT [Concomitant]
     Indication: HIATUS HERNIA
     Dosage: 60 MG
     Dates: start: 20110101

REACTIONS (11)
  - NAUSEA [None]
  - EYE SWELLING [None]
  - HYPERSOMNIA [None]
  - CONTUSION [None]
  - EPISTAXIS [None]
  - ERUCTATION [None]
  - HYPOAESTHESIA [None]
  - CHEST PAIN [None]
  - ABDOMINAL PAIN UPPER [None]
  - DEFAECATION URGENCY [None]
  - GINGIVAL BLEEDING [None]
